FAERS Safety Report 8430695-7 (Version None)
Quarter: 2012Q2

REPORT INFORMATION
  Report Type: 
  Country: None (occurrence: None)
  Receive Date: 20120612
  Receipt Date: 20120608
  Transmission Date: 20120825
  Serious: Yes (Death, Hospitalization)
  Sender: FDA-Public Use
  Company Number: GB-ROCHE-1075574

PATIENT
  Age: 59 Year
  Sex: Male
  Weight: 95.5 kg

DRUGS (2)
  1. VEMURAFENIB [Suspect]
     Indication: MALIGNANT MELANOMA
     Route: 048
     Dates: start: 20120503, end: 20120530
  2. FUROSEMIDE [Concomitant]
     Dates: start: 20120403, end: 20120605

REACTIONS (1)
  - HYPERKALAEMIA [None]
